FAERS Safety Report 9663980 (Version 1)
Quarter: 2013Q4

REPORT INFORMATION
  Report Type: Spontaneous
  Country: DE (occurrence: DE)
  Receive Date: 20131101
  Receipt Date: 20131101
  Transmission Date: 20140711
  Serious: Yes (Other)
  Sender: FDA-Public Use
  Company Number: DE-TEVA-440154GER

PATIENT
  Age: 50 Year
  Sex: Male

DRUGS (1)
  1. COPAXONE [Suspect]
     Indication: RELAPSING-REMITTING MULTIPLE SCLEROSIS
     Dosage: 20 MG/ML DAILY;
     Route: 058
     Dates: start: 200806

REACTIONS (1)
  - Osteonecrosis [Recovered/Resolved]
